FAERS Safety Report 7588651-7 (Version None)
Quarter: 2011Q3

REPORT INFORMATION
  Report Type: 
  Country: None (occurrence: None)
  Receive Date: 20110705
  Receipt Date: 20110622
  Transmission Date: 20111222
  Serious: Yes (Hospitalization, Other)
  Sender: FDA-Public Use
  Company Number: US-BAYER-2011-032780

PATIENT
  Age: 38 Year
  Sex: Female
  Weight: 63.492 kg

DRUGS (5)
  1. DOXYCYCLINE [Concomitant]
     Indication: ACNE
     Dosage: 100 MG, BID
     Dates: start: 20041101, end: 20050401
  2. HYDROCODONE BITARTRATE AND ACETAMINOPHEN [Concomitant]
     Indication: PAIN
     Dosage: 5 MG, PRN
     Dates: start: 20050414
  3. YASMIN [Suspect]
     Indication: PRODUCT USED FOR UNKNOWN INDICATION
     Dosage: UNK
     Dates: start: 20050302, end: 20050420
  4. DIFFERIN [Concomitant]
     Indication: ACNE
     Dosage: 1 DF, QON
     Dates: start: 20040101, end: 20050101
  5. RETIN-A MICRO [Concomitant]
     Indication: ACNE
     Dosage: 0.1 %, QON
     Dates: start: 20050301, end: 20060301

REACTIONS (6)
  - MUSCLE STRAIN [None]
  - CHEST PAIN [None]
  - HAEMOPTYSIS [None]
  - DYSPNOEA [None]
  - COUGH [None]
  - PULMONARY EMBOLISM [None]
